FAERS Safety Report 6318588-2 (Version None)
Quarter: 2009Q3

REPORT INFORMATION
  Report Type: 
  Country: None (occurrence: None)
  Receive Date: 20090821
  Receipt Date: 20090817
  Transmission Date: 20100115
  Serious: Yes (Death)
  Sender: FDA-Public Use
  Company Number: PHHO2009JP08629

PATIENT
  Sex: Male
  Weight: 55 kg

DRUGS (15)
  1. BLINDED ALISKIREN ALI+TAB+CVR [Suspect]
     Indication: CARDIOVASCULAR DISORDER
     Dosage: CODE NOT BROKEN
     Route: 048
     Dates: start: 20081027
  2. BLINDED NO TREATMENT RECEIVED NOMED [Suspect]
     Indication: CARDIOVASCULAR DISORDER
     Dosage: CODE NOT BROKEN
     Route: 048
     Dates: start: 20081027
  3. BLINDED PLACEBO COMP-PLA+ [Suspect]
     Indication: CARDIOVASCULAR DISORDER
     Dosage: CODE NOT BROKEN
     Route: 048
     Dates: start: 20081027
  4. STARSIS [Suspect]
     Indication: DIABETES MELLITUS
     Dosage: 270 MG
     Route: 048
  5. PURSENNID [Suspect]
     Indication: CONSTIPATION
     Dosage: 24 MG
     Route: 048
  6. MELBIN [Suspect]
     Indication: DIABETES MELLITUS
     Dosage: 750 MG
     Route: 048
  7. ENALAPRIL MALEATE [Suspect]
     Indication: HYPERTENSION
     Dosage: 6 MG
     Route: 048
  8. AMLODIN [Suspect]
     Indication: HYPERTENSION
     Dosage: 2.5 MG
     Route: 048
  9. FLUITRAN [Suspect]
     Indication: HYPERTENSION
     Dosage: 2 MG
     Route: 048
  10. PITAVASTATIN CALCIUM [Suspect]
     Indication: HYPERLIPIDAEMIA
     Dosage: 1 MG
     Route: 048
  11. NEUROTROPIN [Suspect]
     Indication: LUMBAR SPINAL STENOSIS
     Dosage: 12 DF
     Route: 048
  12. METHYCOBAL [Suspect]
     Indication: LUMBAR SPINAL STENOSIS
     Dosage: 1500 UG
     Route: 048
  13. OPALMON [Suspect]
     Indication: LUMBAR SPINAL STENOSIS
     Dosage: 15 UG
     Route: 048
  14. IDOMETHINE [Suspect]
     Indication: LUMBAR SPINAL STENOSIS
     Route: 062
  15. KARY UNI [Suspect]
     Indication: CATARACT
     Dosage: 4 DF
     Route: 048

REACTIONS (2)
  - CARDIAC FAILURE [None]
  - RESPIRATORY FAILURE [None]
